FAERS Safety Report 13463601 (Version 8)
Quarter: 2018Q2

REPORT INFORMATION
  Report Type: Report from Study
  Country: US (occurrence: US)
  Receive Date: 20170420
  Receipt Date: 20180504
  Transmission Date: 20180711
  Serious: Yes (Hospitalization)
  Sender: FDA-Public Use
  Company Number: US-ACTELION-A-NJ2017-149453

PATIENT
  Age: 75 Year
  Sex: Female
  Weight: 54.42 kg

DRUGS (8)
  1. VELETRI [Suspect]
     Active Substance: EPOPROSTENOL
     Indication: PULMONARY ARTERIAL HYPERTENSION
     Dosage: 6 NG/KG, PER MIN
     Route: 042
  2. SILDENAFIL CITRATE. [Concomitant]
     Active Substance: SILDENAFIL CITRATE
  3. VELETRI [Suspect]
     Active Substance: EPOPROSTENOL
     Dosage: 16 NG/KG, PER MIN
     Route: 042
  4. REVATIO [Concomitant]
     Active Substance: SILDENAFIL CITRATE
  5. VELETRI [Suspect]
     Active Substance: EPOPROSTENOL
     Dosage: 7 NG/KG, PER MIN
     Route: 042
  6. VELETRI [Suspect]
     Active Substance: EPOPROSTENOL
     Dosage: 13 NG/KG, PER MIN
     Route: 042
  7. VELETRI [Suspect]
     Active Substance: EPOPROSTENOL
     Dosage: 5 NG/KG, PER MIN
     Route: 042
  8. ADCIRCA [Concomitant]
     Active Substance: TADALAFIL

REACTIONS (32)
  - Pneumonia [Unknown]
  - Dizziness [Unknown]
  - Renal disorder [Unknown]
  - Catheter site erythema [Unknown]
  - Nasal congestion [Unknown]
  - Pain in extremity [Not Recovered/Not Resolved]
  - Feeling abnormal [Not Recovered/Not Resolved]
  - Dyspepsia [Unknown]
  - Gastric disorder [Unknown]
  - Joint stiffness [Unknown]
  - Dyspnoea exertional [Unknown]
  - Decreased appetite [Not Recovered/Not Resolved]
  - Blood pressure decreased [Unknown]
  - Drug hypersensitivity [Unknown]
  - Pain in jaw [Unknown]
  - Dyspnoea [Recovering/Resolving]
  - Headache [Unknown]
  - Pain [Unknown]
  - Nausea [Unknown]
  - Vomiting [Not Recovered/Not Resolved]
  - Chest pain [Unknown]
  - Nasopharyngitis [Unknown]
  - Myocardial infarction [Unknown]
  - Diarrhoea [Not Recovered/Not Resolved]
  - Flushing [Unknown]
  - Alopecia [Unknown]
  - Arthralgia [Unknown]
  - Oxygen saturation decreased [Unknown]
  - Malaise [Unknown]
  - Asthenia [Unknown]
  - Chest discomfort [Unknown]
  - Palpitations [Unknown]
